FAERS Safety Report 13179497 (Version 1)
Quarter: 2017Q1

REPORT INFORMATION
  Report Type: Spontaneous
  Country: DE (occurrence: DE)
  Receive Date: 20170202
  Receipt Date: 20170202
  Transmission Date: 20170428
  Serious: Yes (Congenital Anomaly, Other)
  Sender: FDA-Public Use
  Company Number: DE-PFIZER INC-2017037380

PATIENT
  Sex: Male

DRUGS (3)
  1. VENLAFAXIN PFIZER RETARD [Suspect]
     Active Substance: VENLAFAXINE HYDROCHLORIDE
     Indication: POST-TRAUMATIC STRESS DISORDER
     Dosage: 150 MG, 1X/DAY, FIRST AND SECOND TRIMESTER (0. - 25. GW)
     Route: 064
     Dates: start: 20151202, end: 20160614
  2. ATOSIL [Suspect]
     Active Substance: PROMETHAZINE HYDROCHLORIDE
     Indication: POST-TRAUMATIC STRESS DISORDER
     Dosage: 25 MG, 1X/DAY FIRST AND SECOND  TRIMESTER (0. - 28. GW)
     Route: 064
     Dates: start: 20151202, end: 20160705
  3. FOLIC ACID. [Concomitant]
     Active Substance: FOLIC ACID
     Indication: PROPHYLAXIS OF NEURAL TUBE DEFECT
     Dosage: 1 TRIMESTER (7. - 38.6 GW)
     Route: 064
     Dates: start: 20160209, end: 20160919

REACTIONS (9)
  - Pleural effusion [Unknown]
  - Ventricular septal defect [Unknown]
  - Hypertension neonatal [Unknown]
  - Maternal exposure during pregnancy [Unknown]
  - Congenital diaphragmatic hernia [Recovered/Resolved with Sequelae]
  - Amniotic fluid volume increased [Unknown]
  - Patent ductus arteriosus [Recovering/Resolving]
  - Atrial septal defect [Unknown]
  - Cardiomyopathy [Unknown]

NARRATIVE: CASE EVENT DATE: 20160920
